APPROVED DRUG PRODUCT: BELEODAQ
Active Ingredient: BELINOSTAT
Strength: 500MG/VIAL
Dosage Form/Route: POWDER;INTRAVENOUS
Application: N206256 | Product #001
Applicant: ACROTECH BIOPHARMA INC
Approved: Jul 3, 2014 | RLD: Yes | RS: Yes | Type: RX

PATENTS:
Patent 8835501 | Expires: Oct 27, 2027
Patent 6888027 | Expires: Aug 10, 2026